FAERS Safety Report 20032945 (Version 1)
Quarter: 2021Q4

REPORT INFORMATION
  Report Type: Spontaneous
  Country: US (occurrence: US)
  Receive Date: 20211104
  Receipt Date: 20211104
  Transmission Date: 20220303
  Serious: No
  Sender: FDA-Public Use
  Company Number: US-JNJFOC-20211048645

PATIENT
  Age: 21 Year
  Sex: Female
  Weight: 52.16 kg

DRUGS (3)
  1. ZYRTEC [Suspect]
     Active Substance: CETIRIZINE HYDROCHLORIDE
     Indication: Rash
     Route: 065
     Dates: start: 202110
  2. BENADRYL [Suspect]
     Active Substance: DIPHENHYDRAMINE HYDROCHLORIDE
     Indication: Rash
     Route: 065
     Dates: start: 202110
  3. COVID-19 VACCINE [Concomitant]
     Indication: Immunisation
     Dosage: 1ST DOSE
     Route: 065
     Dates: start: 20210930

REACTIONS (3)
  - Product use in unapproved indication [Unknown]
  - Off label use [Unknown]
  - Therapeutic response unexpected [Unknown]

NARRATIVE: CASE EVENT DATE: 20211001
